FAERS Safety Report 17413782 (Version 1)
Quarter: 2020Q1

REPORT INFORMATION
  Report Type: Spontaneous
  Country: US (occurrence: US)
  Receive Date: 20200213
  Receipt Date: 20200213
  Transmission Date: 20200409
  Serious: Yes (Hospitalization)
  Sender: FDA-Public Use
  Company Number: None

PATIENT
  Age: 65 Year
  Sex: Female
  Weight: 162 kg

DRUGS (17)
  1. ACTETAMINOPHEN 650 MG [Concomitant]
  2. ADVAIR DISKUS [Concomitant]
     Active Substance: FLUTICASONE PROPIONATE\SALMETEROL XINAFOATE
  3. ASPIRIN 81 MG [Concomitant]
     Active Substance: ASPIRIN
  4. ATORVASTATIN 80 MG [Concomitant]
     Active Substance: ATORVASTATIN
  5. ENALAPRIL [Suspect]
     Active Substance: ENALAPRIL
     Route: 048
  6. POLYETHYLENE GLYCOL 17 GM [Concomitant]
  7. FLUTICASONE NASAL SPRAY [Concomitant]
     Active Substance: FLUTICASONE
  8. GLIPIZIDE 5 MG [Concomitant]
  9. METFORMIN [Concomitant]
     Active Substance: METFORMIN HYDROCHLORIDE
  10. NYSTATIN POWDER [Concomitant]
     Active Substance: NYSTATIN
  11. FLUTICASONE 0.005% OINT [Concomitant]
  12. CLOPIDOGREL [Concomitant]
     Active Substance: CLOPIDOGREL BISULFATE
  13. NYSTATIN CREAM [Concomitant]
     Active Substance: NYSTATIN
  14. PANTOPRAZOLE 40 MG [Concomitant]
     Active Substance: PANTOPRAZOLE SODIUM
  15. CHOLECALCIFEROL 2000 UNITS [Concomitant]
  16. MECLIZINE 25 MG [Concomitant]
  17. GABAPENTIN 800 MG [Concomitant]
     Active Substance: GABAPENTIN

REACTIONS (2)
  - Angioedema [None]
  - Dysphagia [None]

NARRATIVE: CASE EVENT DATE: 20190609
